FAERS Safety Report 10797263 (Version 1)
Quarter: 2015Q1

REPORT INFORMATION
  Report Type: Spontaneous
  Country: US (occurrence: US)
  Receive Date: 20150216
  Receipt Date: 20150216
  Transmission Date: 20150721
  Serious: Yes (Hospitalization)
  Sender: FDA-Public Use
  Company Number: US-ASTRAZENECA-2015SE12802

PATIENT
  Age: 341 Day
  Sex: Male

DRUGS (5)
  1. ATIVAN [Concomitant]
     Active Substance: LORAZEPAM
  2. VANCOMYCIN [Concomitant]
     Active Substance: VANCOMYCIN
  3. MORPHINE [Concomitant]
     Active Substance: MORPHINE
  4. KEPPRA [Concomitant]
     Active Substance: LEVETIRACETAM
  5. SYNAGIS [Suspect]
     Active Substance: PALIVIZUMAB
     Dosage: 50 MG/ 0.5 ML, 15MG/KG MONTHY
     Route: 030

REACTIONS (1)
  - Food intolerance [Unknown]

NARRATIVE: CASE EVENT DATE: 20150107
